FAERS Safety Report 5242262-7 (Version None)
Quarter: 2007Q1

REPORT INFORMATION
  Report Type: 
  Country: None (occurrence: None)
  Receive Date: 20070216
  Receipt Date: 20070216
  Transmission Date: 20070707
  Serious: Yes (Hospitalization)
  Sender: FDA-Public Use
  Company Number: None

PATIENT
  Age: 74 Year
  Sex: Male
  Weight: 73.0291 kg

DRUGS (1)
  1. WARFARIN SODIUM [Suspect]
     Indication: HIP FRACTURE
     Dosage: 2.5 MG DAILY PO
     Route: 048
     Dates: start: 20061230, end: 20070124

REACTIONS (8)
  - CONSTIPATION [None]
  - DISORIENTATION [None]
  - EPISTAXIS [None]
  - FALL [None]
  - FEMUR FRACTURE [None]
  - GASTROINTESTINAL HAEMORRHAGE [None]
  - HAEMATEMESIS [None]
  - MELAENA [None]
